FAERS Safety Report 23247705 (Version 3)
Quarter: 2023Q4

REPORT INFORMATION
  Report Type: Spontaneous
  Country: US (occurrence: US)
  Receive Date: 20231130
  Receipt Date: 20231219
  Transmission Date: 20240109
  Serious: Yes (Hospitalization)
  Sender: FDA-Public Use
  Company Number: US-JNJFOC-20231178710

PATIENT
  Age: 68 Year
  Sex: Female

DRUGS (3)
  1. OPSUMIT [Suspect]
     Active Substance: MACITENTAN
     Indication: Product used for unknown indication
     Route: 048
  2. UPTRAVI [Suspect]
     Active Substance: SELEXIPAG
     Indication: Pulmonary arterial hypertension
     Dosage: UPTRAVI DOSE 1200 MCG IN AM AND 1400 MCG IN PM
     Route: 048
  3. TADALAFIL [Concomitant]
     Active Substance: TADALAFIL

REACTIONS (1)
  - Rhinovirus infection [Not Recovered/Not Resolved]

NARRATIVE: CASE EVENT DATE: 20231128
